FAERS Safety Report 4481489-9 (Version None)
Quarter: 2004Q3

REPORT INFORMATION
  Report Type: 
  Country: None (occurrence: None)
  Receive Date: 20040923
  Receipt Date: 20040812
  Transmission Date: 20050211
  Serious: No
  Sender: FDA-Public Use
  Company Number: USA040669312

PATIENT
  Age: 86 Year
  Sex: Female
  Weight: 45 kg

DRUGS (8)
  1. FORTEO [Suspect]
     Indication: OSTEOPOROSIS
     Dosage: 20 UG/DAY
     Dates: start: 20040427
  2. COUMADIN [Concomitant]
  3. SODIUM CHLORIDE INJ [Concomitant]
  4. DIGOXIN [Concomitant]
  5. SOTALOL HCL [Concomitant]
  6. DEXTRO (DEXTROMETHORPHAN HYDROROMIDE) [Concomitant]
  7. CALTRATE 600 PLUS VITAMIN D [Concomitant]
  8. FOSAMAX [Concomitant]

REACTIONS (6)
  - DIZZINESS [None]
  - INJECTION SITE BURNING [None]
  - INJECTION SITE PAIN [None]
  - INSOMNIA [None]
  - MEDICATION ERROR [None]
  - NAUSEA [None]
